FAERS Safety Report 7915944-3 (Version None)
Quarter: 2011Q4

REPORT INFORMATION
  Report Type: 
  Country: None (occurrence: None)
  Receive Date: 20111115
  Receipt Date: 20111110
  Transmission Date: 20120403
  Serious: Yes (Death, Hospitalization)
  Sender: FDA-Public Use
  Company Number: US-BMSGILMSD-2011-0044102

PATIENT
  Age: 54 Year
  Sex: Male

DRUGS (6)
  1. EFAVIRENZ/EMTRICITABINE/TENOFOVIR DISOPROXIL FUMARATE [Suspect]
     Indication: HIV INFECTION
  2. FENTANYL [Suspect]
  3. PACLITAXEL [Suspect]
  4. LORTAB [Suspect]
  5. CARBOPLATIN [Suspect]
  6. CETUXIMAB [Suspect]

REACTIONS (3)
  - DEATH [None]
  - NAUSEA [None]
  - VOMITING [None]
